FAERS Safety Report 16117411 (Version 9)
Quarter: 2021Q4

REPORT INFORMATION
  Report Type: Spontaneous
  Country: US (occurrence: US)
  Receive Date: 20190326
  Receipt Date: 20211014
  Transmission Date: 20220304
  Serious: Yes (Other)
  Sender: FDA-Public Use
  Company Number: US-PFIZER INC-2018473157

PATIENT
  Age: 42 Year
  Sex: Male

DRUGS (1)
  1. LYRICA [Suspect]
     Active Substance: PREGABALIN
     Indication: Pain
     Dosage: 225 MG, 2X/DAY (1 CAPSULE 2 TIMES A DAY)
     Dates: start: 20181108

REACTIONS (4)
  - Upper limb fracture [Unknown]
  - Illness [Unknown]
  - Withdrawal syndrome [Unknown]
  - COVID-19 [Not Recovered/Not Resolved]
